FAERS Safety Report 18223083 (Version 1)
Quarter: 2020Q3

REPORT INFORMATION
  Report Type: Report from Study
  Country: CZ (occurrence: CZ)
  Receive Date: 20200902
  Receipt Date: 20200902
  Transmission Date: 20201103
  Serious: Yes (Other)
  Sender: FDA-Public Use
  Company Number: CZ-JNJFOC-20200836391

PATIENT
  Age: 54 Year
  Sex: Female

DRUGS (1)
  1. SIMPONI [Suspect]
     Active Substance: GOLIMUMAB
     Indication: PSORIATIC ARTHROPATHY
     Route: 058
     Dates: start: 20180707

REACTIONS (1)
  - Pneumonia chlamydial [Recovered/Resolved]

NARRATIVE: CASE EVENT DATE: 2020
